FAERS Safety Report 10667266 (Version 1)
Quarter: 2014Q4

REPORT INFORMATION
  Report Type: Spontaneous
  Country: US (occurrence: None)
  Receive Date: 20141219
  Receipt Date: 20141219
  Transmission Date: 20150529
  Serious: No
  Sender: FDA-Public Use
  Company Number: None

PATIENT
  Age: 51 Year
  Sex: Female

DRUGS (1)
  1. TECFIDERA [Suspect]
     Active Substance: DIMETHYL FUMARATE
     Indication: MULTIPLE SCLEROSIS
     Route: 048
     Dates: start: 20141007, end: 20141212

REACTIONS (4)
  - Hepatic enzyme increased [None]
  - Vomiting [None]
  - Weight decreased [None]
  - Nausea [None]

NARRATIVE: CASE EVENT DATE: 20141212
